FAERS Safety Report 6125932-8 (Version None)
Quarter: 2009Q1

REPORT INFORMATION
  Report Type: 
  Country: None (occurrence: None)
  Receive Date: 20090318
  Receipt Date: 20090305
  Transmission Date: 20090719
  Serious: Yes (Death, Other)
  Sender: FDA-Public Use
  Company Number: CLOF-1000453

PATIENT
  Age: 15 Year
  Sex: Male

DRUGS (1)
  1. EVOLTRA (CLOFARABINE) SOLUTION FOR INFUSION [Suspect]
     Indication: ACUTE LEUKAEMIA
     Dosage: 72 MG QDX5; INTRAVENOUS
     Route: 042
     Dates: start: 20090209, end: 20090213

REACTIONS (3)
  - CARDIAC FAILURE ACUTE [None]
  - DIALYSIS [None]
  - RENAL FAILURE ACUTE [None]
